FAERS Safety Report 16485861 (Version 10)
Quarter: 2022Q1

REPORT INFORMATION
  Report Type: Spontaneous
  Country: US (occurrence: US)
  Receive Date: 20190627
  Receipt Date: 20220207
  Transmission Date: 20220423
  Serious: No
  Sender: FDA-Public Use
  Company Number: US-SA-2019SA053746

PATIENT
  Age: 34 Year
  Sex: Female
  Weight: 72.109 kg

DRUGS (2)
  1. CEREZYME [Suspect]
     Active Substance: IMIGLUCERASE
     Indication: Gaucher^s disease
     Dosage: 4400 U, QOW
     Route: 041
     Dates: start: 20180711
  2. CEREZYME [Suspect]
     Active Substance: IMIGLUCERASE
     Indication: Genitourinary symptom

REACTIONS (6)
  - Weight increased [Unknown]
  - Product dose omission issue [Unknown]
  - Exposure during pregnancy [Unknown]
  - Therapy cessation [Unknown]
  - Product dose omission issue [Unknown]
  - Product use in unapproved indication [Unknown]

NARRATIVE: CASE EVENT DATE: 20190621
